FAERS Safety Report 5938001-4 (Version None)
Quarter: 2008Q4

REPORT INFORMATION
  Report Type: 
  Country: None (occurrence: None)
  Receive Date: 20081031
  Receipt Date: 20081023
  Transmission Date: 20090506
  Serious: Yes (Other)
  Sender: FDA-Public Use
  Company Number: US-PFIZER INC-2008081224

PATIENT
  Sex: Female
  Weight: 59.09 kg

DRUGS (3)
  1. AMLODIPINE [Suspect]
     Indication: HYPERTENSION
     Route: 048
  2. ALTACE [Concomitant]
  3. LIPITOR [Concomitant]

REACTIONS (5)
  - ACQUIRED OESOPHAGEAL WEB [None]
  - CHOKING SENSATION [None]
  - DYSPHAGIA [None]
  - OESOPHAGEAL DISORDER [None]
  - REFLUX OESOPHAGITIS [None]
